FAERS Safety Report 7390233-7 (Version None)
Quarter: 2011Q2

REPORT INFORMATION
  Report Type: 
  Country: None (occurrence: None)
  Receive Date: 20110401
  Receipt Date: 20110328
  Transmission Date: 20111010
  Serious: Yes (Hospitalization)
  Sender: FDA-Public Use
  Company Number: PH-PFIZER INC-2011056988

PATIENT
  Age: 73 Year
  Sex: Female

DRUGS (13)
  1. METHYLPREDNISOLONE [Suspect]
  2. POTASSIUM [Concomitant]
     Dosage: UNK
     Dates: start: 20101005
  3. LOSARTAN POTASSIUM [Concomitant]
     Dosage: UNK
     Dates: start: 20100928
  4. CAL MAG [Concomitant]
     Dosage: UNK
     Dates: start: 20100928
  5. HYDROCORTISONE [Concomitant]
     Dosage: UNK
     Route: 042
     Dates: start: 20101005
  6. KALIUM DURETTER [Concomitant]
     Dosage: UNK
     Dates: start: 20101006
  7. ACETAMINOPHEN [Concomitant]
     Dosage: 12 MG, UNK
     Dates: start: 20101005
  8. DEXTROSE [Concomitant]
     Dosage: UNK
     Dates: start: 20101005
  9. OMEPRAZOLE [Concomitant]
     Dosage: UNK
     Dates: start: 20101006
  10. BLINDED THERAPY [Suspect]
     Indication: THROMBOSIS PROPHYLAXIS
     Dosage: UNK
     Dates: start: 20100925
  11. CALCIUM GLUCONATE [Concomitant]
     Dosage: 12 MG, UNK
     Dates: start: 20101005
  12. MAGNESIUM [Concomitant]
     Dosage: UNK
     Dates: start: 20101005
  13. AMLODIPINE [Concomitant]
     Dosage: UNK
     Dates: start: 20100928

REACTIONS (2)
  - ILEUS [None]
  - HEMIPARESIS [None]
